FAERS Safety Report 4818326-6 (Version None)
Quarter: 2005Q3

REPORT INFORMATION
  Report Type: 
  Country: None (occurrence: None)
  Receive Date: 20050929
  Receipt Date: 20050706
  Transmission Date: 20060218
  Serious: No
  Sender: FDA-Public Use
  Company Number: 05P-163-0304923-00

PATIENT
  Age: 64 Year
  Sex: Female
  Weight: 78.0187 kg

DRUGS (7)
  1. HUMIRA [Suspect]
     Indication: RHEUMATOID ARTHRITIS
     Dosage: 40MG 1 IN 2 WK, SUBCUTANEOUS
     Route: 058
     Dates: start: 20050315
  2. LEFLUNOMIDE [Concomitant]
  3. HYDROXYCHLOROQUINE PHOSPHATE [Concomitant]
  4. SULFASALAZINE [Concomitant]
  5. PREDNISONE [Concomitant]
  6. METOPROLOL TARTRATE [Concomitant]
  7. RAMIPRIL [Concomitant]

REACTIONS (4)
  - ALOPECIA [None]
  - ARTHRALGIA [None]
  - CONDITION AGGRAVATED [None]
  - HAIR TEXTURE ABNORMAL [None]
